FAERS Safety Report 17815691 (Version 3)
Quarter: 2020Q2

REPORT INFORMATION
  Report Type: Spontaneous
  Country: RU (occurrence: RU)
  Receive Date: 20200522
  Receipt Date: 20200609
  Transmission Date: 20200714
  Serious: Yes (Other)
  Sender: FDA-Public Use
  Company Number: RU-PFIZER INC-2020200437

PATIENT
  Age: 13 Year
  Sex: Male

DRUGS (10)
  1. METHOTREXATE. [Concomitant]
     Active Substance: METHOTREXATE
     Indication: ANAPLASTIC LARGE-CELL LYMPHOMA
     Dosage: UNK (1 U/M2, AS REPORTED)
     Dates: start: 20131223
  2. IFOSFAMIDE. [Concomitant]
     Active Substance: IFOSFAMIDE
     Indication: ANAPLASTIC LARGE-CELL LYMPHOMA
     Dosage: 800 MG/M2, CYCLIC (FROM 1 TO 5 DAYS)
     Dates: start: 20131223
  3. ETOPOSIDE. [Concomitant]
     Active Substance: ETOPOSIDE
     Indication: ANAPLASTIC LARGE-CELL LYMPHOMA
     Dosage: 100 MG/M2, CYCLIC (IN 4 AND 5 DAYS)
     Dates: start: 20131223
  4. CYTARABINE. [Suspect]
     Active Substance: CYTARABINE
     Indication: ANAPLASTIC LARGE-CELL LYMPHOMA
     Dosage: 26 MG
     Dates: start: 20131223
  5. DEXAMETHASONE. [Concomitant]
     Active Substance: DEXAMETHASONE
     Dosage: 2 MG (AS REPORTED)
  6. METHOTREXATE. [Concomitant]
     Active Substance: METHOTREXATE
     Dosage: 10 MG
     Route: 037
  7. CYTARABINE. [Suspect]
     Active Substance: CYTARABINE
     Dosage: UNK (BLOCK AM2)
     Dates: start: 20140207, end: 2014
  8. CYTARABINE. [Suspect]
     Active Substance: CYTARABINE
     Dosage: 300 MG/M3, CYCLIC (IN 4 AND 5 DAYS)
  9. DEXAMETHASONE. [Concomitant]
     Active Substance: DEXAMETHASONE
     Indication: ANAPLASTIC LARGE-CELL LYMPHOMA
     Dosage: 10 MG/M2, CYCLIC (1-5 DAYS)
     Dates: start: 20131223
  10. CYTARABINE. [Suspect]
     Active Substance: CYTARABINE
     Dosage: UNK (BLOCK AM3)
     Dates: start: 20140329

REACTIONS (5)
  - Nausea [Unknown]
  - Cytomegalovirus infection [Recovered/Resolved]
  - Bone marrow failure [Recovered/Resolved]
  - Hypertension [Unknown]
  - Stomatitis [Recovered/Resolved]
